FAERS Safety Report 13504099 (Version 2)
Quarter: 2017Q2

REPORT INFORMATION
  Report Type: Spontaneous
  Country: BE (occurrence: BE)
  Receive Date: 20170502
  Receipt Date: 20170529
  Transmission Date: 20170830
  Serious: Yes (Hospitalization, Other)
  Sender: FDA-Public Use
  Company Number: BE-AMGEN-BELSP2017064461

PATIENT
  Age: 63 Year
  Sex: Male

DRUGS (2)
  1. ARANESP [Suspect]
     Active Substance: DARBEPOETIN ALFA
     Dosage: 120 MUG, 3 TIMES/WK
     Route: 042
     Dates: end: 20170405
  2. ARANESP [Suspect]
     Active Substance: DARBEPOETIN ALFA
     Indication: NEPHROGENIC ANAEMIA
     Dosage: 40 MUG, 3 TIMES/WK
     Route: 042
     Dates: start: 20110923

REACTIONS (6)
  - Colitis ischaemic [Unknown]
  - Enterococcal bacteraemia [Unknown]
  - Aplasia pure red cell [Unknown]
  - Clostridium difficile colitis [Unknown]
  - Off label use [Unknown]
  - Refractory anaemia with ringed sideroblasts [Not Recovered/Not Resolved]

NARRATIVE: CASE EVENT DATE: 20161106
